FAERS Safety Report 13561568 (Version 2)
Quarter: 2017Q2

REPORT INFORMATION
  Report Type: Spontaneous
  Country: DE (occurrence: DE)
  Receive Date: 20170518
  Receipt Date: 20170613
  Transmission Date: 20170830
  Serious: Yes (Other)
  Sender: FDA-Public Use
  Company Number: DE-BIOGEN-2017BI00403952

PATIENT
  Age: 35 Year
  Sex: Female

DRUGS (2)
  1. AVONEX [Suspect]
     Active Substance: INTERFERON BETA-1A
     Indication: MULTIPLE SCLEROSIS
     Route: 030
     Dates: start: 201704
  2. AVONEX [Suspect]
     Active Substance: INTERFERON BETA-1A
     Dosage: ONE-QUARTER OF A PRE-FILLED SYRINGE
     Route: 030
     Dates: start: 20170505, end: 20170505

REACTIONS (8)
  - Confusional state [Recovered/Resolved]
  - Limb discomfort [Recovered/Resolved]
  - Anaphylactic shock [Recovered/Resolved]
  - Diplopia [Recovered/Resolved]
  - Pain [Unknown]
  - Rash [Unknown]
  - Headache [Unknown]
  - Pyrexia [Recovered/Resolved]

NARRATIVE: CASE EVENT DATE: 20170505
